FAERS Safety Report 7516408-1 (Version None)
Quarter: 2011Q2

REPORT INFORMATION
  Report Type: 
  Country: None (occurrence: None)
  Receive Date: 20110601
  Receipt Date: 20110502
  Transmission Date: 20111010
  Serious: Yes (Other)
  Sender: FDA-Public Use
  Company Number: US-BAYER-2011-012985

PATIENT
  Age: 51 Year
  Sex: Female
  Weight: 65.76 kg

DRUGS (12)
  1. ANTIBIOTICS [Concomitant]
     Dosage: UNK
     Dates: start: 20000101
  2. PROMETHAZINE [Concomitant]
     Dosage: UNK
     Dates: start: 20030101
  3. ADVIL LIQUI-GELS [Concomitant]
     Dosage: UNK
     Dates: start: 20000101
  4. VITAMINE C [Concomitant]
     Indication: HYPOVITAMINOSIS
     Dosage: UNK UNK, QD
     Dates: start: 20020101
  5. CIPROFLOXACIN [Concomitant]
     Dosage: UNK
     Dates: start: 20030101
  6. YAZ [Suspect]
     Indication: PRODUCT USED FOR UNKNOWN INDICATION
     Dosage: UNK
     Dates: start: 20061017, end: 20071001
  7. MULTI-VITAMIN [Concomitant]
     Indication: HYPOVITAMINOSIS
     Dosage: UNK UNK, QD
     Dates: start: 20020101
  8. YAZ [Suspect]
     Dosage: UNK
     Dates: start: 20061017, end: 20070921
  9. AZITHROMYCIN [Concomitant]
     Dosage: UNK
     Dates: start: 20030101
  10. VITAMIN E-400 [Concomitant]
     Indication: HYPOVITAMINOSIS
     Dosage: UNK UNK, QD
     Dates: start: 20020101
  11. ALPRAZOLAM [Concomitant]
     Dosage: UNK
     Dates: start: 20030101
  12. PHENAVENT [Concomitant]
     Dosage: UNK
     Dates: start: 20030101

REACTIONS (2)
  - GASTRIC DISORDER [None]
  - CHOLELITHIASIS [None]
